FAERS Safety Report 9052965 (Version 2)
Quarter: 2013Q1

REPORT INFORMATION
  Report Type: Spontaneous
  Country: US (occurrence: US)
  Receive Date: 20130208
  Receipt Date: 20130225
  Transmission Date: 20140127
  Serious: Yes (Death, Life-Threatening)
  Sender: FDA-Public Use
  Company Number: US-009507513-1302USA001932

PATIENT
  Sex: Male

DRUGS (1)
  1. JANUVIA [Suspect]
     Indication: TYPE 2 DIABETES MELLITUS
     Dosage: UNK
     Route: 048
     Dates: start: 200807

REACTIONS (1)
  - Pancreatic carcinoma [Fatal]
